FAERS Safety Report 4999311-0 (Version None)
Quarter: 2006Q2

REPORT INFORMATION
  Report Type: 
  Country: None (occurrence: None)
  Receive Date: 20060509
  Receipt Date: 20060429
  Transmission Date: 20061013
  Serious: Yes (Other)
  Sender: FDA-Public Use
  Company Number: 2006057678

PATIENT
  Age: 2 Year
  Sex: Male

DRUGS (1)
  1. CHILDREN'S PEDIACARE NIGHTREST COUGH AND COLD (PSEUDOEPHEDRINE, DEXTRO [Suspect]
     Indication: ACCIDENTAL EXPOSURE
     Dosage: A LITTLE LESS THAN 1/2
     Dates: start: 20060429, end: 20060429

REACTIONS (4)
  - ACCIDENTAL DRUG INTAKE BY CHILD [None]
  - DYSPNOEA [None]
  - LETHARGY [None]
  - MYDRIASIS [None]
